FAERS Safety Report 14005082 (Version 3)
Quarter: 2018Q1

REPORT INFORMATION
  Report Type: Spontaneous
  Country: NL (occurrence: NL)
  Receive Date: 20170922
  Receipt Date: 20180306
  Transmission Date: 20180508
  Serious: Yes (Other)
  Sender: FDA-Public Use
  Company Number: NL-JNJFOC-20170919113

PATIENT
  Sex: Male
  Weight: 120 kg

DRUGS (1)
  1. REMICADE [Suspect]
     Active Substance: INFLIXIMAB
     Indication: ANKYLOSING SPONDYLITIS
     Route: 042

REACTIONS (9)
  - Immunosuppression [Unknown]
  - Pain [Unknown]
  - Adverse reaction [Unknown]
  - Infusion related reaction [Unknown]
  - Drug ineffective [Unknown]
  - Dizziness [Unknown]
  - Therapeutic response unexpected [Unknown]
  - Inflammation [Unknown]
  - Loss of consciousness [Unknown]
